FAERS Safety Report 24563128 (Version 1)
Quarter: 2024Q4

REPORT INFORMATION
  Report Type: Spontaneous
  Country: GB (occurrence: GB)
  Receive Date: 20241030
  Receipt Date: 20241030
  Transmission Date: 20250115
  Serious: Yes (Other)
  Sender: TEVA
  Company Number: GB-MHRA-32982359

PATIENT
  Sex: Female

DRUGS (1)
  1. LIDOCAINE [Suspect]
     Active Substance: LIDOCAINE
     Indication: Product used for unknown indication
     Route: 065

REACTIONS (3)
  - Ageusia [Not Recovered/Not Resolved]
  - Mouth ulceration [Unknown]
  - Burning sensation [Unknown]

NARRATIVE: CASE EVENT DATE: 20240718
